FAERS Safety Report 18273397 (Version 3)
Quarter: 2021Q3

REPORT INFORMATION
  Report Type: Spontaneous
  Country: US (occurrence: US)
  Receive Date: 20200916
  Receipt Date: 20210714
  Transmission Date: 20211014
  Serious: Yes (Other)
  Sender: FDA-Public Use
  Company Number: US-SA-2020SA250899

PATIENT
  Age: 57 Year
  Sex: Male

DRUGS (1)
  1. ZANTAC [Suspect]
     Active Substance: RANITIDINE HYDROCHLORIDE
     Dosage: 25 MG, QD
     Dates: start: 200203, end: 200506

REACTIONS (1)
  - Prostate cancer stage II [Unknown]

NARRATIVE: CASE EVENT DATE: 19980901
